FAERS Safety Report 4823003-1 (Version None)
Quarter: 2005Q4

REPORT INFORMATION
  Report Type: 
  Country: None (occurrence: None)
  Receive Date: 20051108
  Receipt Date: 20051018
  Transmission Date: 20060501
  Serious: Yes (Hospitalization)
  Sender: FDA-Public Use
  Company Number: FI-NOVOPROD-247881

PATIENT
  Age: 70 Year
  Sex: Female
  Weight: 50 kg

DRUGS (7)
  1. LEVEMIR [Suspect]
     Indication: DIABETES MELLITUS INSULIN-DEPENDENT
     Dosage: 19 IU, QD
     Route: 058
     Dates: start: 20041130, end: 20051006
  2. INSULIN ASPART [Concomitant]
     Dosage: 14 IU, QD
     Dates: start: 20010528
  3. ENALAPRIL MALEATE [Concomitant]
     Dosage: 20 + 12.5 MG PER DAY
     Route: 048
     Dates: start: 20001101
  4. LERCANIDIPINE [Concomitant]
     Dosage: 10 MG, QD
     Route: 048
     Dates: start: 20031203, end: 20050414
  5. ASPIRIN [Concomitant]
     Dosage: 100 MG, QD
     Route: 048
     Dates: start: 20010502
  6. SIMVASTATIN [Concomitant]
     Dosage: 20 MG, QD
     Route: 048
     Dates: start: 20021122
  7. EFEXOR                                  /BEL/ [Concomitant]
     Indication: DEPRESSION
     Dosage: 37.5 MG, QD

REACTIONS (1)
  - WEIGHT DECREASED [None]
